FAERS Safety Report 23350305 (Version 1)
Quarter: 2023Q4

REPORT INFORMATION
  Report Type: Spontaneous
  Country: US (occurrence: None)
  Receive Date: 20231228
  Receipt Date: 20231228
  Transmission Date: 20240110
  Serious: No
  Sender: FDA-Public Use
  Company Number: None

PATIENT

DRUGS (2)
  1. VYVGART HYTRULO [Suspect]
     Active Substance: EFGARTIGIMOD ALFA\HYALURONIDASE-QVFC
     Dosage: OTHER STRENGTH : 1,008 MG AND 11, 2;?
     Route: 058
  2. VYVGART [Suspect]
     Active Substance: EFGARTIGIMOD ALFA-FCAB
     Dosage: OTHER STRENGTH : 400 MG/20ML (20 MG;?
     Route: 042

REACTIONS (2)
  - Device delivery system issue [None]
  - Device use confusion [None]
